FAERS Safety Report 19322615 (Version 3)
Quarter: 2021Q3

REPORT INFORMATION
  Report Type: Report from Study
  Country: US (occurrence: US)
  Receive Date: 20210527
  Receipt Date: 20210809
  Transmission Date: 20211014
  Serious: Yes (Hospitalization)
  Sender: FDA-Public Use
  Company Number: US-SEATTLE GENETICS-2021SGN02122

PATIENT
  Sex: Female

DRUGS (3)
  1. TUCATINIB [Suspect]
     Active Substance: TUCATINIB
     Indication: COLON CANCER
     Dosage: UNK
  2. TUCATINIB [Suspect]
     Active Substance: TUCATINIB
     Dosage: UNK
  3. TUCATINIB [Suspect]
     Active Substance: TUCATINIB
     Dosage: UNK

REACTIONS (10)
  - Unevaluable event [Unknown]
  - Diarrhoea [Unknown]
  - Product dose omission in error [Unknown]
  - Hypersomnia [Unknown]
  - Glossitis [Unknown]
  - Somnolence [Unknown]
  - Cerebrovascular accident [Unknown]
  - Fatigue [Unknown]
  - Product use in unapproved indication [Unknown]
  - Headache [Unknown]
